FAERS Safety Report 14755606 (Version 2)
Quarter: 2018Q2

REPORT INFORMATION
  Report Type: Report from Study
  Country: SE (occurrence: SE)
  Receive Date: 20180413
  Receipt Date: 20180416
  Transmission Date: 20180711
  Serious: Yes (Hospitalization)
  Sender: FDA-Public Use
  Company Number: SE-ROCHE-2102310

PATIENT
  Age: 80 Year
  Sex: Female
  Weight: 61 kg

DRUGS (11)
  1. ALLOPURINOL. [Concomitant]
     Active Substance: ALLOPURINOL
     Route: 048
     Dates: start: 20180306
  2. SALURES [Concomitant]
     Active Substance: BENDROFLUMETHIAZIDE
     Route: 048
     Dates: start: 20171230
  3. VAGIFEM [Concomitant]
     Active Substance: ESTRADIOL
     Route: 048
     Dates: start: 20171229
  4. EUSAPRIM FORTE [Concomitant]
     Active Substance: SULFAMETHOXAZOLE\TRIMETHOPRIM
     Dosage: 1600/800 MG
     Route: 048
     Dates: start: 20180313
  5. OMEPRAZOL [Concomitant]
     Active Substance: OMEPRAZOLE
     Route: 048
     Dates: start: 20171230
  6. TROMBYL [Concomitant]
     Active Substance: ASPIRIN
     Route: 048
     Dates: start: 20171230
  7. VENETOCLAX. [Suspect]
     Active Substance: VENETOCLAX
     Indication: CHRONIC LYMPHOCYTIC LEUKAEMIA
     Dosage: THIS WAS THE MOST RECENT DOSE PRIOR TO SAE?CYCLE 1: 20 MG (2 TABL. AT 10 MG), D22-28, Q28D
     Route: 048
     Dates: start: 20180403
  8. CIPROFLOXACIN. [Concomitant]
     Active Substance: CIPROFLOXACIN
     Route: 048
     Dates: start: 20180404
  9. ACICLOVIR [Concomitant]
     Active Substance: ACYCLOVIR
     Route: 048
     Dates: start: 20180313
  10. RITUXIMAB. [Suspect]
     Active Substance: RITUXIMAB
     Indication: CHRONIC LYMPHOCYTIC LEUKAEMIA
     Dosage: THIS WAS THE MOST RECENT DOSE PRIOR TO SAE?CYCLE 1: 375 MG/M2, D0; CYCLES 2-6: 500 MG/M2, D1; Q28D
     Route: 042
     Dates: start: 20180313
  11. FASTURTEC [Concomitant]
     Active Substance: RASBURICASE
     Route: 042
     Dates: start: 20180403, end: 20180403

REACTIONS (1)
  - Pyrexia [Recovered/Resolved]

NARRATIVE: CASE EVENT DATE: 20180403
